FAERS Safety Report 12110036 (Version 1)
Quarter: 2016Q1

REPORT INFORMATION
  Report Type: Spontaneous
  Country: DE (occurrence: DE)
  Receive Date: 20160224
  Receipt Date: 20160224
  Transmission Date: 20160526
  Serious: Yes (Other)
  Sender: FDA-Public Use
  Company Number: DE-JNJFOC-20160221601

PATIENT
  Age: 76 Year
  Sex: Female

DRUGS (1)
  1. XARELTO [Suspect]
     Active Substance: RIVAROXABAN
     Indication: CEREBROVASCULAR ACCIDENT
     Route: 048

REACTIONS (2)
  - Craniocerebral injury [Unknown]
  - Intraventricular haemorrhage [Unknown]

NARRATIVE: CASE EVENT DATE: 20150112
